FAERS Safety Report 5311351-0 (Version None)
Quarter: 2007Q2

REPORT INFORMATION
  Report Type: 
  Country: None (occurrence: None)
  Receive Date: 20070430
  Receipt Date: 20070419
  Transmission Date: 20071010
  Serious: Yes (Hospitalization)
  Sender: FDA-Public Use
  Company Number: PHEH2007US06105

PATIENT

DRUGS (1)
  1. RITALIN [Suspect]

REACTIONS (4)
  - CHEST PAIN [None]
  - HEART RATE ABNORMAL [None]
  - INTENTIONAL DRUG MISUSE [None]
  - SEDATIVE THERAPY [None]
